FAERS Safety Report 20744340 (Version 1)
Quarter: 2022Q2

REPORT INFORMATION
  Report Type: Report from Study
  Country: CA (occurrence: CA)
  Receive Date: 20220425
  Receipt Date: 20220425
  Transmission Date: 20220720
  Serious: Yes (Other)
  Sender: FDA-Public Use
  Company Number: CA-BAUSCH-BL-2022-009380

PATIENT

DRUGS (3)
  1. CONTRAVE [Suspect]
     Active Substance: BUPROPION HYDROCHLORIDE\NALTREXONE HYDROCHLORIDE
     Indication: Weight control
     Dosage: 8/90MG, 1TAB IN MORNING
     Route: 048
     Dates: start: 202204, end: 20220410
  2. NEXIUM [Concomitant]
     Active Substance: ESOMEPRAZOLE MAGNESIUM
     Indication: Gastrooesophageal reflux disease
     Dosage: OD
     Route: 048
  3. CRESTOR [Concomitant]
     Active Substance: ROSUVASTATIN CALCIUM
     Indication: Blood cholesterol abnormal
     Dosage: OD
     Route: 048

REACTIONS (7)
  - Loss of consciousness [Recovered/Resolved]
  - Blood pressure systolic increased [Recovered/Resolved]
  - Hypersomnia [Recovered/Resolved]
  - Anxiety [Recovered/Resolved]
  - Dizziness [Recovered/Resolved]
  - Disturbance in attention [Recovered/Resolved]
  - Heart rate increased [Recovered/Resolved]

NARRATIVE: CASE EVENT DATE: 20220410
